FAERS Safety Report 10670761 (Version 2)
Quarter: 2014Q4

REPORT INFORMATION
  Report Type: Report from Study
  Country: US (occurrence: US)
  Receive Date: 20141223
  Receipt Date: 20141223
  Transmission Date: 20150529
  Serious: Yes (Other)
  Sender: FDA-Public Use
  Company Number: PHEH2014US019015

PATIENT
  Age: 48 Year
  Sex: Female

DRUGS (2)
  1. TOBI [Suspect]
     Active Substance: TOBRAMYCIN
     Indication: BRONCHIECTASIS
     Dosage: 300 MG, UNK (EVERY 12 HOURS)
     Route: 055
     Dates: start: 20140313
  2. TOBI [Suspect]
     Active Substance: TOBRAMYCIN
     Dosage: 5 ML, UNK
     Route: 055

REACTIONS (4)
  - Decreased appetite [Recovering/Resolving]
  - Pneumonia [Recovering/Resolving]
  - Product use issue [Unknown]
  - Oropharyngeal pain [Recovering/Resolving]

NARRATIVE: CASE EVENT DATE: 20140513
